FAERS Safety Report 11782216 (Version 2)
Quarter: 2015Q4

REPORT INFORMATION
  Report Type: Spontaneous
  Country: PT (occurrence: PT)
  Receive Date: 20151127
  Receipt Date: 20151222
  Transmission Date: 20160305
  Serious: Yes (Other)
  Sender: FDA-Public Use
  Company Number: PT-AXELLIA-000878

PATIENT
  Age: 13 Year
  Sex: Male

DRUGS (6)
  1. CLINDAMYCIN [Suspect]
     Active Substance: CLINDAMYCIN\CLINDAMYCIN PHOSPHATE
     Indication: ANTIBIOTIC THERAPY
     Dosage: MENINGEAL DOSES WERE ADMINISTERED TO THE PATIENT.
  2. AMOXICILLIN. [Concomitant]
     Active Substance: AMOXICILLIN
     Route: 048
  3. CLAVULANATE POTASSIUM/CLAVULANIC ACID [Concomitant]
     Route: 048
  4. VANCOMYCIN [Suspect]
     Active Substance: VANCOMYCIN
     Indication: ANTIBIOTIC THERAPY
     Dosage: MENINGEAL DOSES WERE ADMINISTERED TO THE PATIENT.
  5. CEFTRIAXONE/CEFTRIAXONE SODIUM [Suspect]
     Active Substance: CEFTRIAXONE SODIUM
     Indication: ANTIBIOTIC THERAPY
     Dosage: MENINGEAL DOSES WERE ADMINISTERED TO THE PATIENT.
  6. MEROPENEM/MEROPENEM TRIHYDRATE [Suspect]
     Active Substance: MEROPENEM
     Indication: PRODUCT USED FOR UNKNOWN INDICATION

REACTIONS (6)
  - Type IV hypersensitivity reaction [Recovering/Resolving]
  - Rash [Recovering/Resolving]
  - Malaise [Recovering/Resolving]
  - Pyrexia [Recovering/Resolving]
  - Mucous membrane disorder [Recovering/Resolving]
  - Drug cross-reactivity [Unknown]
